FAERS Safety Report 22260247 (Version 1)
Quarter: 2023Q2

REPORT INFORMATION
  Report Type: Spontaneous
  Country: CO (occurrence: CO)
  Receive Date: 20230427
  Receipt Date: 20230427
  Transmission Date: 20230721
  Serious: Yes (Hospitalization)
  Sender: FDA-Public Use
  Company Number: CO-BAXTER-2023BAX019742

PATIENT
  Sex: Female

DRUGS (1)
  1. DIANEAL PD-2 WITH DEXTROSE [Suspect]
     Active Substance: CALCIUM CHLORIDE\DEXTROSE\MAGNESIUM CHLORIDE\SODIUM CHLORIDE\SODIUM LACTATE
     Indication: Peritoneal dialysis
     Dosage: 2 LITRES, 4 TIMES PER DAY
     Route: 033
     Dates: start: 2020, end: 20230416

REACTIONS (3)
  - Blood potassium increased [Recovered/Resolved]
  - Device malfunction [Unknown]
  - Constipation [Unknown]

NARRATIVE: CASE EVENT DATE: 20230414
